FAERS Safety Report 6412697-5 (Version None)
Quarter: 2009Q4

REPORT INFORMATION
  Report Type: 
  Country: None (occurrence: None)
  Receive Date: 20091023
  Receipt Date: 20091020
  Transmission Date: 20100525
  Serious: Yes (Death)
  Sender: FDA-Public Use
  Company Number: PHHY2009BR45212

PATIENT
  Sex: Female

DRUGS (10)
  1. EXFORGE [Suspect]
     Dosage: 160/5 MG
  2. EXFORGE [Suspect]
     Dosage: 80/5 MG
  3. DIOVAN HCT [Suspect]
     Dosage: 160/25 MG
  4. DIOVAN HCT [Suspect]
     Dosage: 80/12.5 MG
  5. DIOVAN HCT [Suspect]
     Dosage: 160/12.5 MG
  6. DIOVAN [Suspect]
     Dosage: 320 MG
  7. DIOVAN [Suspect]
     Dosage: 80 MG
  8. DIOVAN AMLO FIX [Suspect]
     Dosage: 320/10 MG
  9. DIOVAN AMLO FIX [Suspect]
     Dosage: 320/5 MG
  10. DIOVAN AMLO FIX [Suspect]
     Dosage: 160/5 MG

REACTIONS (1)
  - DEATH [None]
